FAERS Safety Report 26038982 (Version 4)
Quarter: 2025Q4

REPORT INFORMATION
  Report Type: Spontaneous
  Country: US (occurrence: None)
  Receive Date: 20251113
  Receipt Date: 20251226
  Transmission Date: 20260118
  Serious: Yes (Life-Threatening)
  Sender: CHIESI
  Company Number: US-CHIESI-2025CHF08066

PATIENT

DRUGS (1)
  1. CUROSURF [Suspect]
     Active Substance: PORACTANT ALFA
     Indication: Neonatal respiratory distress syndrome
     Dosage: 2.5 MILLILITER

REACTIONS (2)
  - Cardiac arrest neonatal [Unknown]
  - Product complaint [Recovered/Resolved]

NARRATIVE: CASE EVENT DATE: 20251107
